FAERS Safety Report 15406419 (Version 1)
Quarter: 2018Q3

REPORT INFORMATION
  Report Type: Spontaneous
  Country: JP (occurrence: JP)
  Receive Date: 20180920
  Receipt Date: 20180920
  Transmission Date: 20181010
  Serious: Yes (Other)
  Sender: FDA-Public Use
  Company Number: JP-ROCHE-2165083

PATIENT
  Age: 77 Year
  Sex: Female
  Weight: 41 kg

DRUGS (9)
  1. NEORAL [Concomitant]
     Active Substance: CYCLOSPORINE
     Dosage: DOSAGE IS UNCERTAIN.
     Route: 065
     Dates: start: 20090424, end: 20111110
  2. PRALIA [Concomitant]
     Active Substance: DENOSUMAB
     Dosage: DOSAGE IS UNCERTAIN.
     Route: 065
     Dates: start: 20150119
  3. ACTEMRA [Suspect]
     Active Substance: TOCILIZUMAB
     Dosage: RECENT DOSE ON 04/SEP/2018
     Route: 058
     Dates: start: 20180501
  4. MEVALOTIN [Concomitant]
     Active Substance: PRAVASTATIN SODIUM
     Dosage: DOSAGE IS UNCERTAIN.
     Route: 065
     Dates: start: 20090424, end: 20150414
  5. MICARDIS [Concomitant]
     Active Substance: TELMISARTAN
     Dosage: DOSAGE IS UNCERTAIN.
     Route: 065
     Dates: start: 20090424, end: 20091212
  6. PROGRAF [Concomitant]
     Active Substance: TACROLIMUS\TACROLIMUS ANHYDROUS
     Dosage: DOSAGE IS UNCERTAIN.
     Route: 065
     Dates: start: 20111111
  7. ACTEMRA [Suspect]
     Active Substance: TOCILIZUMAB
     Indication: RHEUMATOID ARTHRITIS
     Route: 041
     Dates: start: 20090421
  8. ACTEMRA [Suspect]
     Active Substance: TOCILIZUMAB
     Indication: RHEUMATOID ARTHRITIS
     Route: 058
     Dates: start: 20140627
  9. PREDNISOLONE. [Concomitant]
     Active Substance: PREDNISOLONE
     Route: 065
     Dates: start: 200902, end: 20140308

REACTIONS (3)
  - Chronic kidney disease [Unknown]
  - Drug ineffective [Unknown]
  - Arthralgia [Unknown]

NARRATIVE: CASE EVENT DATE: 20140312
